FAERS Safety Report 6205399-1 (Version None)
Quarter: 2009Q2

REPORT INFORMATION
  Report Type: 
  Country: None (occurrence: None)
  Receive Date: 20090527
  Receipt Date: 20090316
  Transmission Date: 20091009
  Serious: No
  Sender: FDA-Public Use
  Company Number: US-ABBOTT-09P-163-0562853-00

PATIENT
  Sex: Female
  Weight: 63.56 kg

DRUGS (3)
  1. SIMCOR [Suspect]
     Indication: BLOOD CHOLESTEROL INCREASED
     Route: 048
     Dates: start: 20081001, end: 20081101
  2. SIMCOR [Suspect]
     Dosage: 750MG/20MG, 1IN 1 D
     Route: 048
     Dates: start: 20081101
  3. EVISTA [Concomitant]
     Indication: OSTEOPENIA
     Route: 048

REACTIONS (1)
  - PARAESTHESIA [None]
